FAERS Safety Report 8077118-8 (Version None)
Quarter: 2012Q1

REPORT INFORMATION
  Report Type: 
  Country: None (occurrence: None)
  Receive Date: 20120127
  Receipt Date: 20120120
  Transmission Date: 20120608
  Serious: Yes (Hospitalization, Other)
  Sender: FDA-Public Use
  Company Number: PHEH2010US03508

PATIENT
  Sex: Female
  Weight: 74.83 kg

DRUGS (17)
  1. CYTOXAN [Concomitant]
     Dates: start: 20061129
  2. ONDANSETRON HCL [Concomitant]
     Dosage: 8 MG, BID
  3. FLUCONAZOLE [Concomitant]
     Dosage: 2 DF, QD
     Route: 048
  4. TAXOL [Concomitant]
  5. CLINDAMYCIN [Concomitant]
  6. TAMOXIFEN CITRATE [Concomitant]
  7. CLEOCIN HYDROCHLORIDE [Concomitant]
     Dosage: 150 MG, Q8H
     Route: 048
  8. PERIDEX [Concomitant]
  9. ZOMETA [Suspect]
  10. LASIX [Concomitant]
     Dosage: 1 DF, QD
     Route: 048
  11. CIPROFLOXACIN [Concomitant]
     Dosage: 500 MG, BID
  12. VICODIN [Concomitant]
  13. PROCRIT [Concomitant]
  14. ADRIAMYCIN PFS [Concomitant]
     Dates: start: 20061129
  15. MS CONTIN [Concomitant]
     Dosage: 15 MG, Q12H
     Route: 048
  16. NORFLOXACIN [Concomitant]
  17. XELODA [Concomitant]
     Dosage: 1500 MG, BID (500 MG - 3 TAB BID)
     Route: 048

REACTIONS (65)
  - INFECTION [None]
  - OVERDOSE [None]
  - CHONDROPATHY [None]
  - NASOPHARYNGEAL CANCER [None]
  - PRESBYOPIA [None]
  - FUNGAL INFECTION [None]
  - ERYTHEMA [None]
  - INTESTINAL FISTULA [None]
  - OSTEONECROSIS OF JAW [None]
  - METASTASES TO BONE [None]
  - HYPOAESTHESIA [None]
  - NEOPLASM MALIGNANT [None]
  - HEPATIC NEOPLASM [None]
  - SCOLIOSIS [None]
  - CATARACT NUCLEAR [None]
  - HEPATITIS C [None]
  - DEFORMITY [None]
  - BREAST CANCER METASTATIC [None]
  - HUMERUS FRACTURE [None]
  - GAIT DISTURBANCE [None]
  - CHRONIC GRANULOMATOUS DISEASE [None]
  - PROTEINURIA [None]
  - INTERVERTEBRAL DISC DEGENERATION [None]
  - ALANINE AMINOTRANSFERASE INCREASED [None]
  - MUSCULOSKELETAL PAIN [None]
  - CHOLELITHIASIS [None]
  - PAIN [None]
  - WEIGHT DECREASED [None]
  - HAEMATURIA [None]
  - EXOSTOSIS [None]
  - ASTIGMATISM [None]
  - CONVULSION [None]
  - MUSCULAR WEAKNESS [None]
  - BACK PAIN [None]
  - PATHOLOGICAL FRACTURE [None]
  - INTERVERTEBRAL DISC PROTRUSION [None]
  - CELLULITIS [None]
  - CHEST PAIN [None]
  - ANAEMIA [None]
  - RENAL CYST [None]
  - ASPARTATE AMINOTRANSFERASE INCREASED [None]
  - WHITE BLOOD CELL COUNT INCREASED [None]
  - PLATELET COUNT DECREASED [None]
  - HYPOAESTHESIA ORAL [None]
  - NAIL DISORDER [None]
  - TENDON DISORDER [None]
  - CENTRAL NERVOUS SYSTEM LESION [None]
  - JOINT SWELLING [None]
  - SINUS TACHYCARDIA [None]
  - CARDIAC DISORDER [None]
  - HEPATIC STEATOSIS [None]
  - BRONCHITIS [None]
  - METASTASES TO CENTRAL NERVOUS SYSTEM [None]
  - BRAIN OEDEMA [None]
  - PALMAR-PLANTAR ERYTHRODYSAESTHESIA SYNDROME [None]
  - DECREASED INTEREST [None]
  - MYALGIA [None]
  - DIARRHOEA [None]
  - BLOOD ALKALINE PHOSPHATASE INCREASED [None]
  - FATIGUE [None]
  - MYOPIA [None]
  - ARTHRALGIA [None]
  - CUSHINGOID [None]
  - RENAL CANCER [None]
  - AMNESIA [None]
